FAERS Safety Report 6560036-1 (Version None)
Quarter: 2010Q1

REPORT INFORMATION
  Report Type: 
  Country: None (occurrence: None)
  Receive Date: 20100129
  Receipt Date: 20090918
  Transmission Date: 20100710
  Serious: No
  Sender: FDA-Public Use
  Company Number: US-ABBOTT-09P-163-0598338-00

PATIENT
  Sex: Male
  Weight: 44.038 kg

DRUGS (3)
  1. HUMIRA [Suspect]
     Indication: CROHN'S DISEASE
     Route: 058
     Dates: start: 20090301
  2. OXYCONTIN [Concomitant]
     Indication: PAIN
     Route: 048
  3. OXYCONTIN [Concomitant]
     Indication: DIARRHOEA

REACTIONS (3)
  - DIARRHOEA [None]
  - FLATULENCE [None]
  - IRRITABLE BOWEL SYNDROME [None]
